FAERS Safety Report 12531698 (Version 1)
Quarter: 2016Q3

REPORT INFORMATION
  Report Type: Spontaneous
  Country: CH (occurrence: CH)
  Receive Date: 20160706
  Receipt Date: 20160706
  Transmission Date: 20161109
  Serious: Yes (Hospitalization)
  Sender: FDA-Public Use
  Company Number: CH-MEDA-2016060107

PATIENT
  Age: 70 Year
  Sex: Female

DRUGS (10)
  1. ACLASTA [Suspect]
     Active Substance: ZOLEDRONIC ACID
     Indication: OSTEOPOROSIS
     Route: 041
     Dates: start: 20160519
  2. XARELTO [Concomitant]
     Active Substance: RIVAROXABAN
     Dates: end: 20160527
  3. METHOTREXATE. [Suspect]
     Active Substance: METHOTREXATE
     Indication: POLYMYALGIA RHEUMATICA
     Dates: start: 201503, end: 20160527
  4. CRESTOR [Concomitant]
     Active Substance: ROSUVASTATIN CALCIUM
     Dates: end: 20160527
  5. VALSARTAN/HYDROCHLOROTHIAZIDE [Concomitant]
     Active Substance: HYDROCHLOROTHIAZIDE\VALSARTAN
     Dates: end: 20160527
  6. ALDACTONE [Concomitant]
     Active Substance: SPIRONOLACTONE
     Dates: end: 20160527
  7. PREDNISON [Concomitant]
     Active Substance: PREDNISONE
  8. CONCOR [Concomitant]
     Active Substance: BISOPROLOL FUMARATE
  9. TOREM [Suspect]
     Active Substance: TORSEMIDE
     Route: 048
     Dates: end: 20160527
  10. OMEPRAZOL [Concomitant]
     Active Substance: OMEPRAZOLE

REACTIONS (9)
  - Acute kidney injury [Recovering/Resolving]
  - Renal tubular disorder [Recovering/Resolving]
  - Drug interaction [Unknown]
  - Neutropenia [Recovered/Resolved]
  - Diarrhoea [None]
  - Vomiting [None]
  - General physical health deterioration [None]
  - Nausea [None]
  - Oedema peripheral [None]

NARRATIVE: CASE EVENT DATE: 201605
